FAERS Safety Report 16843017 (Version 1)
Quarter: 2019Q3

REPORT INFORMATION
  Report Type: Spontaneous
  Country: US (occurrence: US)
  Receive Date: 20190924
  Receipt Date: 20190924
  Transmission Date: 20191005
  Serious: No
  Sender: FDA-Public Use
  Company Number: US-ALLERGAN-1923290US

PATIENT
  Sex: Male

DRUGS (4)
  1. REFRESH PLUS PF [Concomitant]
     Dosage: UNK
     Route: 047
  2. SUSTAINE ULTRA [Concomitant]
     Dosage: UNK
     Route: 047
  3. LEXAPRO [Suspect]
     Active Substance: ESCITALOPRAM OXALATE
     Indication: DEPRESSION
     Dosage: UNK
     Route: 065
  4. SUSTAINE [Concomitant]
     Dosage: UNK
     Route: 047

REACTIONS (2)
  - Dry eye [Unknown]
  - Dry mouth [Unknown]
